FAERS Safety Report 4418027-2 (Version None)
Quarter: 2004Q3

REPORT INFORMATION
  Report Type: 
  Country: None (occurrence: None)
  Receive Date: 20040803
  Receipt Date: 20040721
  Transmission Date: 20050211
  Serious: No
  Sender: FDA-Public Use
  Company Number: 04H-056-0268132-00

PATIENT
  Age: 80 Year
  Sex: Male

DRUGS (3)
  1. BUPIVACAINE HYDROCHLORIDE 0.5% INJECTION (BUPIVACAINE HYDROCHLORIDE IN [Suspect]
     Indication: LOCAL ANAESTHESIA
     Dosage: ONCE, INTRAMUSCULAR
     Route: 030
  2. LIDOCAINE HYDROCHLORIDE 2% INJECTION (LIDOCAINE HYDROCHLORIDE INJECTIO [Suspect]
     Indication: LOCAL ANAESTHESIA
     Dosage: ONCE, INTRAMUSCULAR
     Route: 030
  3. PROPOFOL [Concomitant]

REACTIONS (5)
  - ANAESTHETIC COMPLICATION [None]
  - CATARACT OPERATION COMPLICATION [None]
  - DIPLOPIA [None]
  - EYE OEDEMA [None]
  - OPHTHALMOPLEGIA [None]
